FAERS Safety Report 6307277-6 (Version None)
Quarter: 2009Q3

REPORT INFORMATION
  Report Type: 
  Country: None (occurrence: None)
  Receive Date: 20090813
  Receipt Date: 20090803
  Transmission Date: 20100115
  Serious: Yes (Other)
  Sender: FDA-Public Use
  Company Number: GB-PFIZER INC-2009225601

PATIENT
  Age: 86 Year

DRUGS (6)
  1. INSPRA [Suspect]
     Indication: CARDIAC FAILURE
     Dosage: 25 MG, 1X/DAY
     Route: 048
     Dates: start: 20090605
  2. LOSARTAN [Concomitant]
     Indication: DRESSLER'S SYNDROME
     Dosage: 100 MG, 1X/DAY
     Route: 048
  3. OMEPRAZOLE [Concomitant]
     Indication: DRESSLER'S SYNDROME
     Dosage: 20 MG, 1X/DAY
     Route: 048
  4. ATORVASTATIN [Concomitant]
     Indication: DRESSLER'S SYNDROME
     Dosage: 10 MG, 1X/DAY
     Route: 048
     Dates: start: 20090601
  5. BISOPROLOL [Concomitant]
     Indication: DRESSLER'S SYNDROME
     Dosage: 5 MG, 1X/DAY
     Route: 048
     Dates: start: 20090605
  6. ASPIRIN [Concomitant]
     Indication: DRESSLER'S SYNDROME
     Dosage: 75 MG, 1X/DAY
     Route: 048

REACTIONS (1)
  - HALLUCINATION [None]
